FAERS Safety Report 16485524 (Version 2)
Quarter: 2019Q3

REPORT INFORMATION
  Report Type: Spontaneous
  Country: US (occurrence: US)
  Receive Date: 20190627
  Receipt Date: 20190903
  Transmission Date: 20191004
  Serious: Yes (Death, Other)
  Sender: FDA-Public Use
  Company Number: US-009507513-1906USA007726

PATIENT
  Sex: Female

DRUGS (10)
  1. TEMODAR [Suspect]
     Active Substance: TEMOZOLOMIDE
     Indication: NEUROENDOCRINE TUMOUR OF THE LUNG
     Dosage: 300 MILLIGRAM, QD (3 PILLS IN THE EVENING)
     Route: 048
     Dates: start: 20180913
  2. IMODIUM [Concomitant]
     Active Substance: LOPERAMIDE HYDROCHLORIDE
  3. LOMOTIL [Concomitant]
     Active Substance: ATROPINE SULFATE\DIPHENOXYLATE HYDROCHLORIDE
  4. HYDROCHLOROTHIAZIDE. [Concomitant]
     Active Substance: HYDROCHLOROTHIAZIDE
  5. TEMODAR [Suspect]
     Active Substance: TEMOZOLOMIDE
     Dosage: SECOND ROUND
     Dates: end: 201903
  6. AFINITOR [Suspect]
     Active Substance: EVEROLIMUS
  7. OXYCODONE [Concomitant]
     Active Substance: OXYCODONE
  8. LYRICA [Concomitant]
     Active Substance: PREGABALIN
  9. METOPROLOL. [Concomitant]
     Active Substance: METOPROLOL
  10. COZAAR [Concomitant]
     Active Substance: LOSARTAN POTASSIUM

REACTIONS (13)
  - Neuroendocrine tumour of the lung [Fatal]
  - Jaundice [Unknown]
  - Memory impairment [Unknown]
  - Visual impairment [Unknown]
  - Hemiplegia [Unknown]
  - Therapeutic product effect incomplete [Unknown]
  - Adverse event [Unknown]
  - Incontinence [Unknown]
  - Oral mucosal eruption [Unknown]
  - Decreased appetite [Unknown]
  - Eye discharge [Unknown]
  - Confusional state [Unknown]
  - Diarrhoea [Unknown]
